FAERS Safety Report 5883261-1 (Version None)
Quarter: 2008Q3

REPORT INFORMATION
  Report Type: 
  Country: None (occurrence: None)
  Receive Date: 20080915
  Receipt Date: 20080904
  Transmission Date: 20090109
  Serious: Yes (Other)
  Sender: FDA-Public Use
  Company Number: US-JNJFOC-20080901616

PATIENT
  Sex: Female
  Weight: 58.97 kg

DRUGS (4)
  1. ELMIRON [Suspect]
     Route: 048
  2. ELMIRON [Suspect]
     Indication: CYSTITIS INTERSTITIAL
     Route: 048
  3. OVCON-35 [Concomitant]
     Indication: MENSTRUATION IRREGULAR
     Route: 048
  4. FOSAMAX PLUS D [Concomitant]
     Indication: OSTEOPOROSIS
     Route: 048

REACTIONS (4)
  - CONTUSION [None]
  - DIARRHOEA [None]
  - MUSCLE DISORDER [None]
  - WEIGHT DECREASED [None]
